FAERS Safety Report 26043468 (Version 1)
Quarter: 2025Q4

REPORT INFORMATION
  Report Type: Spontaneous
  Country: US (occurrence: US)
  Receive Date: 20251113
  Receipt Date: 20251113
  Transmission Date: 20260117
  Serious: Yes (Hospitalization)
  Sender: SANOFI AVENTIS
  Company Number: US-SA-2025SA337958

PATIENT
  Age: 56 Year
  Sex: Male
  Weight: 133 kg

DRUGS (21)
  1. KEVZARA [Suspect]
     Active Substance: SARILUMAB
     Indication: Polymyalgia rheumatica
     Dosage: 200 MG, QOW
     Route: 058
     Dates: end: 20250930
  2. KEVZARA [Suspect]
     Active Substance: SARILUMAB
     Dosage: 200 MG, QOW
     Route: 058
     Dates: start: 20251030
  3. MAGNESIUM OXIDE [Concomitant]
     Active Substance: MAGNESIUM OXIDE
  4. CYCLOBENZAPRINE HYDROCHLORIDE [Concomitant]
     Active Substance: CYCLOBENZAPRINE HYDROCHLORIDE
  5. OZEMPIC [Concomitant]
     Active Substance: SEMAGLUTIDE
  6. VITAMIN C [Concomitant]
     Active Substance: ASCORBIC ACID
  7. IRON [Concomitant]
     Active Substance: IRON
  8. LANTUS SOLOSTAR [Concomitant]
     Active Substance: INSULIN GLARGINE
  9. FISH OIL [Concomitant]
     Active Substance: FISH OIL
  10. CELEBREX [Concomitant]
     Active Substance: CELECOXIB
     Dosage: UNK
  11. FIBERCON [Concomitant]
     Active Substance: CALCIUM POLYCARBOPHIL
  12. AMLODIPINE BESYLATE [Concomitant]
     Active Substance: AMLODIPINE BESYLATE
  13. GEMFIBROZIL [Concomitant]
     Active Substance: GEMFIBROZIL
     Dosage: UNK
  14. Coenzym Q-10 [Concomitant]
  15. ASPIRIN [Concomitant]
     Active Substance: ASPIRIN
  16. DULOXETINE HYDROCHLORIDE [Concomitant]
     Active Substance: DULOXETINE HYDROCHLORIDE
  17. VALSARTAN [Concomitant]
     Active Substance: VALSARTAN
  18. JARDIANCE [Concomitant]
     Active Substance: EMPAGLIFLOZIN
  19. OXYCODONE HYDROCHLORIDE [Concomitant]
     Active Substance: OXYCODONE HYDROCHLORIDE
  20. FAMOTIDINE [Concomitant]
     Active Substance: FAMOTIDINE
  21. ACTOS [Concomitant]
     Active Substance: PIOGLITAZONE HYDROCHLORIDE

REACTIONS (2)
  - Knee operation [Unknown]
  - Arthralgia [Unknown]

NARRATIVE: CASE EVENT DATE: 20250101
